FAERS Safety Report 4567460-7 (Version None)
Quarter: 2005Q1

REPORT INFORMATION
  Report Type: 
  Country: None (occurrence: None)
  Receive Date: 20050201
  Receipt Date: 20050126
  Transmission Date: 20050727
  Serious: Yes (Other)
  Sender: FDA-Public Use
  Company Number: GB-MERCK-0501GBR00261

PATIENT
  Age: 71 Year
  Sex: Female
  Weight: 99 kg

DRUGS (14)
  1. ZETIA [Suspect]
     Indication: MYOCARDIAL ISCHAEMIA
     Route: 048
     Dates: start: 20040711, end: 20050101
  2. FUROSEMIDE [Concomitant]
     Route: 065
     Dates: start: 20010801
  3. LEVOTHYROXINE SODIUM [Concomitant]
     Route: 065
     Dates: start: 20010801
  4. ACETAMINOPHEN AND PROPOXYPHENE HYDROCHLORIDE [Concomitant]
     Route: 065
     Dates: start: 20010801
  5. ALLOPURINOL [Concomitant]
     Route: 065
     Dates: start: 20010801
  6. NICORANDIL [Concomitant]
     Route: 065
     Dates: start: 20011205
  7. ASPIRIN [Concomitant]
     Route: 065
     Dates: start: 20020117
  8. ATENOLOL [Concomitant]
     Route: 065
     Dates: start: 20020117
  9. VALSARTAN [Concomitant]
     Route: 065
     Dates: start: 20030717
  10. ALUMINUM HYDROXIDE AND MAGNESIUM CARBONATE [Concomitant]
     Route: 065
     Dates: start: 20031114
  11. INSULIN GLARGINE [Concomitant]
     Route: 065
     Dates: start: 20041206
  12. FUSIDIC ACID [Concomitant]
     Route: 065
     Dates: end: 20041125
  13. CLOPIDOGREL BISULFATE [Concomitant]
     Route: 065
     Dates: start: 20030717
  14. INSULIN ASPART [Concomitant]
     Route: 065
     Dates: start: 20041029

REACTIONS (5)
  - CHOKING SENSATION [None]
  - DRY MOUTH [None]
  - DYSPEPSIA [None]
  - DYSPHAGIA [None]
  - HEADACHE [None]
